FAERS Safety Report 16382624 (Version 3)
Quarter: 2019Q2

REPORT INFORMATION
  Report Type: Report from Study
  Country: DE (occurrence: DE)
  Receive Date: 20190603
  Receipt Date: 20190611
  Transmission Date: 20190711
  Serious: Yes (Death, Life-Threatening, Hospitalization)
  Sender: FDA-Public Use
  Company Number: PHHO2019DE005670

PATIENT
  Age: 57 Year
  Sex: Male
  Weight: 96.6 kg

DRUGS (45)
  1. COMPARATOR CYTARABINE [Suspect]
     Active Substance: CYTARABINE
     Indication: ACUTE MYELOID LEUKAEMIA
     Dosage: 200 MG/M2, CONT
     Route: 042
     Dates: start: 20190507
  2. LINEZOLID. [Concomitant]
     Active Substance: LINEZOLID
     Indication: LUNG INFECTION
     Dosage: UNK
     Route: 065
     Dates: start: 20190513, end: 20190515
  3. METOCLOPRAMID [Concomitant]
     Active Substance: METOCLOPRAMIDE
     Indication: PROPHYLAXIS OF NAUSEA AND VOMITING
     Route: 065
     Dates: start: 20190513, end: 20190513
  4. GENTAMICIN. [Concomitant]
     Active Substance: GENTAMICIN
     Indication: VITREOUS HAEMORRHAGE
     Route: 065
     Dates: start: 20190517, end: 20190522
  5. METRONIDAZOL [Concomitant]
     Active Substance: METRONIDAZOLE
     Indication: INFECTION PROPHYLAXIS
     Dosage: UNK
     Route: 065
     Dates: start: 20190512, end: 20190525
  6. POSACONAZOL [Concomitant]
     Active Substance: POSACONAZOLE
     Indication: PROPHYLAXIS
     Dosage: UNK
     Route: 065
     Dates: start: 20190516, end: 20190524
  7. LEVOFLOXACIN. [Concomitant]
     Active Substance: LEVOFLOXACIN
     Indication: INFECTION PROPHYLAXIS
     Dosage: UNK
     Route: 065
     Dates: start: 20190504, end: 20190508
  8. PANTOPRAZOL [Concomitant]
     Active Substance: PANTOPRAZOLE SODIUM
     Dosage: UNK
     Route: 065
     Dates: start: 20190524, end: 20190525
  9. ZOPICLON [Concomitant]
     Active Substance: ZOPICLONE
     Indication: PROPHYLAXIS
     Route: 065
     Dates: start: 20190515, end: 20190524
  10. IPRATROPIUM BROMIDE. [Concomitant]
     Active Substance: IPRATROPIUM BROMIDE
     Indication: PROPHYLAXIS
     Route: 065
     Dates: start: 20190515, end: 20190524
  11. MEROPENEM. [Concomitant]
     Active Substance: MEROPENEM
     Indication: INFECTION PROPHYLAXIS
     Dosage: UNK
     Route: 065
     Dates: start: 20190509, end: 20190525
  12. FUROSEMID [Concomitant]
     Active Substance: FUROSEMIDE
     Indication: FLUID REPLACEMENT
     Dosage: UNK
     Route: 065
     Dates: start: 20190509, end: 20190509
  13. FUROSEMID [Concomitant]
     Active Substance: FUROSEMIDE
     Dosage: UNK
     Dates: start: 20190523, end: 20190524
  14. METAMIZOL [Concomitant]
     Active Substance: METAMIZOLE SODIUM
     Indication: FEBRILE NEUTROPENIA
     Dosage: UNK
     Route: 065
     Dates: start: 20190510, end: 20190513
  15. LINEZOLID. [Concomitant]
     Active Substance: LINEZOLID
     Dosage: UNK
     Route: 065
     Dates: start: 20190519, end: 20190520
  16. KALIUMCHLORID [Concomitant]
     Active Substance: POTASSIUM CHLORIDE
     Indication: PROPHYLAXIS
     Route: 065
     Dates: start: 20190521, end: 20190524
  17. POSACONAZOL [Concomitant]
     Active Substance: POSACONAZOLE
     Dosage: UNK
     Route: 065
     Dates: start: 20190524, end: 20190525
  18. PIPERACILLIN/TAZOBACTAM [Concomitant]
     Active Substance: PIPERACILLIN SODIUM\TAZOBACTAM SODIUM
     Indication: INFECTION PROPHYLAXIS
     Dosage: UNK
     Route: 065
     Dates: start: 20190502, end: 20190509
  19. VORICONAZOL [Concomitant]
     Active Substance: VORICONAZOLE
     Indication: INFECTION PROPHYLAXIS
     Dosage: UNK
     Route: 065
     Dates: start: 20190510, end: 20190510
  20. VORICONAZOL [Concomitant]
     Active Substance: VORICONAZOLE
     Dosage: UNK
     Route: 065
     Dates: start: 20190511, end: 20190516
  21. AMPHOTERICIN B. [Concomitant]
     Active Substance: AMPHOTERICIN B
     Dosage: UNK
     Route: 065
     Dates: start: 20190523, end: 20190524
  22. LOPERAMID [Concomitant]
     Active Substance: LOPERAMIDE
     Dosage: UNK
     Route: 065
     Dates: start: 20190517, end: 20190520
  23. FUROSEMID [Concomitant]
     Active Substance: FUROSEMIDE
     Indication: OEDEMA PERIPHERAL
     Dosage: UNK
     Route: 065
     Dates: start: 20190511, end: 20190514
  24. CGP 41251 [Suspect]
     Active Substance: MIDOSTAURIN
     Indication: ACUTE MYELOID LEUKAEMIA
     Dosage: UNK
     Route: 048
     Dates: start: 20190514, end: 20190524
  25. PARACETAMOL [Concomitant]
     Active Substance: ACETAMINOPHEN
     Indication: PROPHYLAXIS
     Dosage: UNK
     Route: 065
     Dates: start: 20190522, end: 20190523
  26. ALLOPURINOL. [Concomitant]
     Active Substance: ALLOPURINOL
     Indication: PROPHYLAXIS
     Dosage: UNK
     Route: 065
     Dates: start: 20190504, end: 20190512
  27. PANTOPRAZOL [Concomitant]
     Active Substance: PANTOPRAZOLE SODIUM
     Indication: PROPHYLAXIS
     Dosage: UNK
     Route: 065
     Dates: start: 20190509, end: 20190524
  28. LINEZOLID. [Concomitant]
     Active Substance: LINEZOLID
     Indication: INFECTION PROPHYLAXIS
     Dosage: UNK
     Route: 065
     Dates: start: 20190512, end: 20190513
  29. SIMETICON [Concomitant]
     Indication: PROPHYLAXIS
     Route: 065
     Dates: start: 20190513, end: 20190524
  30. CARBOMER [Concomitant]
     Active Substance: CARBOMER
     Indication: VITREOUS HAEMORRHAGE
     Route: 065
     Dates: start: 20190517, end: 20190523
  31. ACETYLSALICYLIC ACID [Concomitant]
     Active Substance: ASPIRIN
     Indication: ACUTE CORONARY SYNDROME
     Route: 065
     Dates: start: 20190503, end: 20190509
  32. PARACETAMOL [Concomitant]
     Active Substance: ACETAMINOPHEN
     Indication: FEBRILE NEUTROPENIA
     Dosage: UNK
     Route: 065
     Dates: start: 20190509, end: 20190512
  33. LOPERAMID [Concomitant]
     Active Substance: LOPERAMIDE
     Indication: DIARRHOEA
     Dosage: UNK
     Route: 065
     Dates: start: 20190513, end: 20190513
  34. METAMIZOL [Concomitant]
     Active Substance: METAMIZOLE SODIUM
     Dosage: UNK
     Route: 065
     Dates: start: 20190522, end: 20190523
  35. CGP 41251 [Suspect]
     Active Substance: MIDOSTAURIN
     Route: 048
     Dates: start: 20190514, end: 20190524
  36. COMPARATOR DAUNORUBICIN [Suspect]
     Active Substance: DAUNORUBICIN
     Indication: ACUTE MYELOID LEUKAEMIA
     Dosage: 60 MG/M2, CONT
     Route: 042
     Dates: start: 20190507
  37. LINEZOLID. [Concomitant]
     Active Substance: LINEZOLID
     Dosage: UNK
     Route: 065
     Dates: start: 20190520, end: 20190524
  38. LINEZOLID. [Concomitant]
     Active Substance: LINEZOLID
     Dosage: UNK
     Route: 065
     Dates: start: 20190524, end: 20190525
  39. FUROSEMID [Concomitant]
     Active Substance: FUROSEMIDE
     Dosage: UNK
     Route: 065
     Dates: start: 20190516, end: 20190519
  40. METAMIZOL [Concomitant]
     Active Substance: METAMIZOLE SODIUM
     Dosage: UNK
     Route: 065
     Dates: start: 20190511, end: 20190511
  41. AMPHOTERICIN B. [Concomitant]
     Active Substance: AMPHOTERICIN B
     Indication: PROPHYLAXIS
     Dosage: UNK
     Route: 065
     Dates: start: 20190503, end: 20190524
  42. VANCOMYCIN [Concomitant]
     Active Substance: VANCOMYCIN
     Indication: INFECTION PROPHYLAXIS
     Dosage: UNK
     Route: 065
     Dates: start: 20190509, end: 20190512
  43. SALBUTAMOL [Concomitant]
     Active Substance: ALBUTEROL
     Indication: PROPHYLAXIS
     Route: 065
     Dates: start: 20190515, end: 20190524
  44. FUROSEMID [Concomitant]
     Active Substance: FUROSEMIDE
     Dosage: UNK
     Route: 065
     Dates: start: 20190515, end: 20190515
  45. METAMIZOL [Concomitant]
     Active Substance: METAMIZOLE SODIUM
     Dosage: UNK
     Route: 065
     Dates: start: 20190519, end: 20190519

REACTIONS (1)
  - Sepsis [Fatal]

NARRATIVE: CASE EVENT DATE: 20190525
